FAERS Safety Report 19276868 (Version 3)
Quarter: 2021Q4

REPORT INFORMATION
  Report Type: Spontaneous
  Country: US (occurrence: US)
  Receive Date: 20210520
  Receipt Date: 20211108
  Transmission Date: 20220303
  Serious: No
  Sender: FDA-Public Use
  Company Number: US-STRONGBRIDGE BIOPHARMA-2021-STR-000179

PATIENT
  Sex: Female

DRUGS (2)
  1. KEVEYIS [Suspect]
     Active Substance: DICHLORPHENAMIDE
     Indication: Product used for unknown indication
     Dosage: TWICE DAILY PO FOR A TOTAL OF 50MG PER DAY
     Route: 048
     Dates: start: 201604
  2. KEVEYIS [Suspect]
     Active Substance: DICHLORPHENAMIDE
     Dosage: 50MG TWICE PO IN THE MORNING AND 50MG ONCE PO AT NIGHT
     Route: 048

REACTIONS (5)
  - Therapy responder [Unknown]
  - Stress [Unknown]
  - Wrong technique in product usage process [Unknown]
  - Asthenia [Unknown]
  - Feeling abnormal [Unknown]
